FAERS Safety Report 16314327 (Version 1)
Quarter: 2019Q2

REPORT INFORMATION
  Report Type: Spontaneous
  Country: US (occurrence: US)
  Receive Date: 20190514
  Receipt Date: 20190514
  Transmission Date: 20190711
  Serious: Yes (Other)
  Sender: FDA-Public Use
  Company Number: None

PATIENT
  Age: 66 Year
  Sex: Female
  Weight: 112.5 kg

DRUGS (13)
  1. SULFAMETHOXAZOLE TMP [Suspect]
     Active Substance: SULFAMETHOXAZOLE\TRIMETHOPRIM
     Indication: BACTERIAL INFECTION
     Dosage: ?          QUANTITY:1 TABLET(S);?
  2. MEMANTINE. [Concomitant]
     Active Substance: MEMANTINE
  3. CALCIUM [Concomitant]
     Active Substance: CALCIUM
  4. BALANCE B 100 COMPLEX [Concomitant]
  5. BABY ASPIRIN [Concomitant]
     Active Substance: ASPIRIN
  6. LITHIUM. [Concomitant]
     Active Substance: LITHIUM
  7. HYDROCHLOROTHIAZIDE. [Concomitant]
     Active Substance: HYDROCHLOROTHIAZIDE
  8. ACYCLOVIR. [Concomitant]
     Active Substance: ACYCLOVIR
  9. AMLODIPINE BESYLATE. [Concomitant]
     Active Substance: AMLODIPINE BESYLATE
  10. PAROXETINE. [Concomitant]
     Active Substance: PAROXETINE
  11. VITAMIN D [Concomitant]
     Active Substance: VITAMIN D NOS
  12. LOSARTAN. [Concomitant]
     Active Substance: LOSARTAN
  13. MELATONIN [Concomitant]
     Active Substance: MELATONIN

REACTIONS (1)
  - Stevens-Johnson syndrome [None]

NARRATIVE: CASE EVENT DATE: 20190322
